FAERS Safety Report 14979917 (Version 1)
Quarter: 2018Q2

REPORT INFORMATION
  Report Type: Spontaneous
  Country: JP (occurrence: JP)
  Receive Date: 20180606
  Receipt Date: 20180606
  Transmission Date: 20180711
  Serious: Yes (Hospitalization, Other)
  Sender: FDA-Public Use
  Company Number: JP-VIVIMED-2018SP003951

PATIENT

DRUGS (2)
  1. ZOLPIDEM [Suspect]
     Active Substance: ZOLPIDEM\ZOLPIDEM TARTRATE
     Indication: PRODUCT USED FOR UNKNOWN INDICATION
     Dosage: 20 MG/DAY
     Route: 065
  2. ZOLPIDEM [Suspect]
     Active Substance: ZOLPIDEM\ZOLPIDEM TARTRATE
     Dosage: UNK (MORE THAN 50 MG/DAY)
     Route: 065

REACTIONS (5)
  - Intentional product misuse [Unknown]
  - Tonic convulsion [Recovered/Resolved]
  - Confusional state [Recovered/Resolved]
  - Drug withdrawal syndrome [Unknown]
  - Delirium [Recovered/Resolved]
